FAERS Safety Report 4357717-7 (Version None)
Quarter: 2004Q2

REPORT INFORMATION
  Report Type: 
  Country: None (occurrence: None)
  Receive Date: 20040513
  Receipt Date: 20040503
  Transmission Date: 20050107
  Serious: Yes (Hospitalization)
  Sender: FDA-Public Use
  Company Number: NL-GLAXOSMITHKLINE-B0331659A

PATIENT
  Age: 35 Year
  Sex: Female

DRUGS (6)
  1. PAROXETINE HCL [Suspect]
     Dosage: 20MG PER DAY
     Dates: start: 20030303, end: 20030814
  2. DICLOFENAC SODIUM RETARD [Concomitant]
     Dosage: 150MG PER DAY
     Dates: start: 20030214
  3. ACETAMINOPHEN [Concomitant]
     Dosage: 1000MG PER DAY
     Dates: start: 20030214
  4. VALPROATE SODIUM [Concomitant]
     Dosage: 3000MG PER DAY
  5. LEVODOPA [Concomitant]
  6. CLONAZEPAM [Concomitant]

REACTIONS (1)
  - TARDIVE DYSKINESIA [None]
